FAERS Safety Report 4720143-2 (Version None)
Quarter: 2005Q3

REPORT INFORMATION
  Report Type: 
  Country: None (occurrence: None)
  Receive Date: 20050721
  Receipt Date: 20040430
  Transmission Date: 20060218
  Serious: No
  Sender: FDA-Public Use
  Company Number: US-GLAXOSMITHKLINE-A0509125A

PATIENT
  Age: 57 Year
  Sex: Female

DRUGS (3)
  1. IMITREX [Suspect]
     Indication: ILL-DEFINED DISORDER
     Route: 048
  2. VIOXX [Concomitant]
  3. NEXIUM [Concomitant]

REACTIONS (1)
  - CHEST PAIN [None]
